FAERS Safety Report 16639080 (Version 1)
Quarter: 2019Q3

REPORT INFORMATION
  Report Type: Spontaneous
  Country: US (occurrence: US)
  Receive Date: 20190726
  Receipt Date: 20190726
  Transmission Date: 20191004
  Serious: No
  Sender: FDA-Public Use
  Company Number: US-IMPAX LABORATORIES, LLC-2018-IPXL-02538

PATIENT
  Age: 80 Year
  Sex: Female
  Weight: 68 kg

DRUGS (6)
  1. TRIAMTERENE AND HYDROCHLOROTHIAZIDE [Concomitant]
     Active Substance: HYDROCHLOROTHIAZIDE\TRIAMTERENE
     Indication: HYPERTENSION
     Dosage: 75/50 MG, 0.5 TABLET, QD
     Route: 048
     Dates: start: 1997
  2. ALLOPURINOL. [Concomitant]
     Active Substance: ALLOPURINOL
     Indication: GOUT
     Dosage: 300 MG, TWO TABLETS, ONCE A DAY
     Route: 048
     Dates: start: 2013
  3. ESTROPIPATE. [Concomitant]
     Active Substance: ESTROPIPATE
     Indication: HORMONE REPLACEMENT THERAPY
     Dosage: 0.75 MG, QD
     Route: 048
     Dates: start: 1997
  4. MEDROXYPROGESTERONE [Concomitant]
     Active Substance: MEDROXYPROGESTERONE
     Indication: HORMONE REPLACEMENT THERAPY
     Dosage: 2.5 MG, QD
     Route: 048
     Dates: start: 1997
  5. OXYMORPHONE HYDROCHLORIDE ER [Suspect]
     Active Substance: OXYMORPHONE HYDROCHLORIDE
     Indication: BACK PAIN
     Dosage: 5 MG, TWO TABLET, TWICE A DAY
     Route: 048
     Dates: start: 2018, end: 20180724
  6. ATENOLOL. [Concomitant]
     Active Substance: ATENOLOL
     Indication: ARRHYTHMIA
     Dosage: UNK, 1 DF, BID
     Route: 048
     Dates: start: 1998

REACTIONS (7)
  - Headache [Recovered/Resolved]
  - Pain [Recovered/Resolved]
  - Drug withdrawal syndrome [Recovered/Resolved]
  - Malaise [Recovered/Resolved]
  - Product substitution issue [Unknown]
  - Therapeutic product effect incomplete [Recovered/Resolved]
  - Nausea [Recovered/Resolved]

NARRATIVE: CASE EVENT DATE: 2018
